FAERS Safety Report 13578475 (Version 2)
Quarter: 2017Q2

REPORT INFORMATION
  Report Type: Spontaneous
  Country: US (occurrence: US)
  Receive Date: 20170524
  Receipt Date: 20170614
  Transmission Date: 20170830
  Serious: No
  Sender: FDA-Public Use
  Company Number: US-BAYER-2017-098488

PATIENT
  Age: 21 Year
  Sex: Female

DRUGS (1)
  1. MIRENA [Suspect]
     Active Substance: LEVONORGESTREL
     Indication: CONTRACEPTION
     Dosage: 20 MCG/24HR, CONT
     Route: 015
     Dates: start: 20161118, end: 20170322

REACTIONS (4)
  - Vulvovaginal burning sensation [Recovered/Resolved]
  - Vaginal haemorrhage [None]
  - Dyspareunia [None]
  - Coital bleeding [None]

NARRATIVE: CASE EVENT DATE: 20170323
